FAERS Safety Report 14335828 (Version 1)
Quarter: 2017Q4

REPORT INFORMATION
  Report Type: Spontaneous
  Country: IN (occurrence: IN)
  Receive Date: 20171229
  Receipt Date: 20171229
  Transmission Date: 20180321
  Serious: Yes (Hospitalization, Disabling, Other)
  Sender: FDA-Public Use
  Company Number: IN-VISTAPHARM, INC.-VER201712-001514

PATIENT
  Age: 55 Year
  Sex: Male

DRUGS (3)
  1. PHENYTOIN. [Suspect]
     Active Substance: PHENYTOIN
     Indication: SEIZURE
  2. PHENYTOIN. [Suspect]
     Active Substance: PHENYTOIN
     Dosage: ON THE DAY OF SURGERY
  3. DEXAMETHASONE. [Concomitant]
     Active Substance: DEXAMETHASONE
     Indication: PRODUCT USED FOR UNKNOWN INDICATION
     Dosage: ON THE DAY OF SURGERY

REACTIONS (4)
  - Skin discolouration [Unknown]
  - Incorrect route of drug administration [Unknown]
  - Gangrene [Unknown]
  - Hypoaesthesia [Unknown]
